FAERS Safety Report 14157140 (Version 4)
Quarter: 2017Q4

REPORT INFORMATION
  Report Type: Report from Study
  Country: FR (occurrence: FR)
  Receive Date: 20171103
  Receipt Date: 20171219
  Transmission Date: 20180321
  Serious: Yes (Hospitalization)
  Sender: FDA-Public Use
  Company Number: FR-TESARO, INC.-FR-2017TSO03685

PATIENT
  Age: 63 Year
  Sex: Male

DRUGS (37)
  1. EXFORGE [Concomitant]
     Active Substance: AMLODIPINE BESYLATE\VALSARTAN
     Indication: HYPERTENSION
     Dosage: UNK, QD
     Route: 048
     Dates: start: 201710
  2. PARACETAMOL [Concomitant]
     Active Substance: ACETAMINOPHEN
     Indication: PELVIC PAIN
     Dosage: 1 G, 1 IN 1 AS NECESSARY
     Route: 048
     Dates: start: 20170619
  3. DOLIPRANE [Concomitant]
     Active Substance: ACETAMINOPHEN
     Indication: PAIN IN EXTREMITY
     Dosage: 1 G, QD PRN
     Route: 048
     Dates: start: 20170304
  4. DOLIPRANE [Concomitant]
     Active Substance: ACETAMINOPHEN
     Indication: PELVIC PAIN
  5. XGEVA [Concomitant]
     Active Substance: DENOSUMAB
     Indication: PROPHYLAXIS
     Dosage: 120 MG, 1 IN 1 MONTH
     Route: 058
     Dates: start: 201412
  6. CACIT D3 [Concomitant]
     Active Substance: CALCIUM\CHOLECALCIFEROL
     Indication: PROPHYLAXIS
     Dosage: 1000 MG, QD
     Route: 048
     Dates: start: 201412
  7. VALSARTAN. [Concomitant]
     Active Substance: VALSARTAN
     Indication: HYPERTENSION
     Dosage: 80 MG, QD
     Route: 048
     Dates: start: 2017
  8. PRIMPERAN [Concomitant]
     Active Substance: METOCLOPRAMIDE HYDROCHLORIDE
     Indication: VOMITING
     Dosage: 10 MG, QD, 1 IN 1 AS NECESSARY
     Route: 048
     Dates: start: 201710
  9. SKENAN [Concomitant]
     Active Substance: MORPHINE SULFATE
     Indication: BACK PAIN
     Dosage: 50 MG, 2 IN 1 DAY
     Dates: start: 20171006
  10. PREDNISONE. [Concomitant]
     Active Substance: PREDNISONE
     Indication: SCIATICA
     Dosage: 40 MG, QD
     Route: 048
     Dates: start: 20170914
  11. ESOMEPRAZOLE [Concomitant]
     Active Substance: ESOMEPRAZOLE
     Indication: GASTROINTESTINAL DISORDER THERAPY
     Dosage: 20 MG, UNK
     Route: 048
     Dates: start: 2017
  12. PREGABALINE [Concomitant]
     Active Substance: PREGABALIN
     Indication: PELVIC PAIN
     Dosage: 25 MG, 2 IN 1 DAY
     Route: 048
     Dates: start: 20170304
  13. PREGABALINE [Concomitant]
     Active Substance: PREGABALIN
     Indication: PAIN IN EXTREMITY
  14. KARDEGIC [Concomitant]
     Active Substance: ASPIRIN DL-LYSINE
     Indication: HYPERTENSION
     Dosage: 75 MG, QD
     Route: 048
  15. PRIMPERAN [Concomitant]
     Active Substance: METOCLOPRAMIDE HYDROCHLORIDE
     Indication: HYPERCHOLESTEROLAEMIA
     Dosage: 10 MG, 1 IN 1 AS NECESSARY
     Route: 048
     Dates: start: 20170304
  16. ACTISKENAN [Concomitant]
     Active Substance: MORPHINE SULFATE
     Indication: SCIATICA
     Dosage: 20 MG, 1 IN 1 AS NECESSARY
     Dates: start: 20171006
  17. PARACETAMOL [Concomitant]
     Active Substance: ACETAMINOPHEN
     Indication: SCIATICA
  18. OMEPRAZOLE. [Concomitant]
     Active Substance: OMEPRAZOLE
     Indication: GASTROINTESTINAL DISORDER THERAPY
     Dosage: 20 MG, QD
     Route: 048
     Dates: start: 2017
  19. PREDNISONE. [Concomitant]
     Active Substance: PREDNISONE
     Dosage: 20 MG, 3 IN 1 DAY
     Dates: start: 201710
  20. CRESTOR [Concomitant]
     Active Substance: ROSUVASTATIN CALCIUM
     Indication: HYPERCHOLESTEROLAEMIA
     Dosage: 5 MG, QD
     Route: 048
  21. PRIMPERAN [Concomitant]
     Active Substance: METOCLOPRAMIDE HYDROCHLORIDE
     Indication: NAUSEA
  22. SKENAN [Concomitant]
     Active Substance: MORPHINE SULFATE
     Indication: SCIATICA
     Dosage: 40 MG, 2 IN 1 DAY
     Dates: start: 20170827
  23. SKENAN [Concomitant]
     Active Substance: MORPHINE SULFATE
     Dosage: 60 MG, 2 IN 1 DAY
     Dates: start: 20171013
  24. PARACETAMOL [Concomitant]
     Active Substance: ACETAMINOPHEN
     Indication: BACK PAIN
     Dosage: 1 POUND, 4 IN 1 DAY
     Dates: start: 2017
  25. LYRICA [Concomitant]
     Active Substance: PREGABALIN
     Indication: PAIN IN EXTREMITY
     Dosage: 100 MG, QD
     Route: 048
     Dates: start: 20170503
  26. LYRICA [Concomitant]
     Active Substance: PREGABALIN
     Indication: PELVIC PAIN
     Dosage: 150 MG, 2 IN 1 DAY
     Route: 048
     Dates: start: 2017
  27. ACTISKENAN [Concomitant]
     Active Substance: MORPHINE SULFATE
     Indication: BACK PAIN
  28. FUNGIZONE [Concomitant]
     Active Substance: AMPHOTERICIN B
     Indication: GASTROINTESTINAL DISORDER THERAPY
     Dosage: 1 DF, 4 IN 1 DAY
     Route: 048
     Dates: start: 2017
  29. NIRAPARIB [Suspect]
     Active Substance: NIRAPARIB
     Indication: PROSTATE CANCER METASTATIC
     Dosage: 300 MG, QD
     Route: 048
     Dates: start: 20170406, end: 20171019
  30. ENANTONE LP [Concomitant]
     Active Substance: LEUPROLIDE ACETATE
     Indication: PRODUCT USED FOR UNKNOWN INDICATION
     Dosage: 11.25 MG, 1 IN 3 MONTHS
     Route: 058
     Dates: start: 201701
  31. SKENAN [Concomitant]
     Active Substance: MORPHINE SULFATE
     Indication: PELVIC PAIN
     Dosage: 30 MG, QD
     Route: 048
     Dates: start: 20170619
  32. AMLOR [Concomitant]
     Active Substance: AMLODIPINE BESYLATE
     Indication: HYPERTENSION
     Dosage: 5 MG, QD
     Route: 048
     Dates: start: 2017
  33. LYRICA [Concomitant]
     Active Substance: PREGABALIN
     Indication: BACK PAIN
  34. SKENAN [Concomitant]
     Active Substance: MORPHINE SULFATE
     Dosage: 30 MG, 2 IN 1 DAY
     Dates: start: 201710
  35. ACTISKENAN [Concomitant]
     Active Substance: MORPHINE SULFATE
     Indication: PELVIC PAIN
     Dosage: 10 MG, 1 IN 1 AS NECESSARY
     Route: 048
     Dates: start: 20170619
  36. PREDNISONE. [Concomitant]
     Active Substance: PREDNISONE
     Indication: PAIN
     Dosage: 20 MG, QD
     Dates: start: 20171013
  37. MOVICOL [Concomitant]
     Active Substance: POLYETHYLENE GLYCOL 3350\POTASSIUM CHLORIDE\SODIUM BICARBONATE\SODIUM CHLORIDE
     Indication: CONSTIPATION PROPHYLAXIS
     Dosage: 1 DF, QD
     Route: 048
     Dates: start: 201708

REACTIONS (2)
  - Respiratory distress [Recovered/Resolved]
  - Dyspnoea [Recovered/Resolved]

NARRATIVE: CASE EVENT DATE: 20171019
